FAERS Safety Report 20845029 (Version 1)
Quarter: 2022Q2

REPORT INFORMATION
  Report Type: Spontaneous
  Country: US (occurrence: None)
  Receive Date: 20220517
  Receipt Date: 20220517
  Transmission Date: 20220720
  Serious: Yes (Other)
  Sender: FDA-Public Use
  Company Number: None

PATIENT
  Age: 70 Year
  Sex: Male
  Weight: 76.05 kg

DRUGS (9)
  1. .DELTA.8-TETRAHYDROCANNABINOL\HERBALS [Suspect]
     Active Substance: .DELTA.8-TETRAHYDROCANNABINOL\HERBALS
     Dosage: OTHER QUANTITY : 7 DROP(S);?OTHER FREQUENCY : JUST ONCE;?
     Route: 060
     Dates: start: 20220504, end: 20220504
  2. ATORVASTATIN [Concomitant]
     Active Substance: ATORVASTATIN
  3. PANTOPRAZOLE [Concomitant]
     Active Substance: PANTOPRAZOLE
  4. DICLOFENAC [Concomitant]
     Active Substance: DICLOFENAC
  5. VITAMIN D [Concomitant]
     Active Substance: VITAMIN D NOS
  6. LEVOTHYROXINE [Concomitant]
     Active Substance: LEVOTHYROXINE
  7. VITAMINS [Concomitant]
     Active Substance: VITAMINS
  8. COMPLEX B VITAMIN [Concomitant]
  9. HERBALS\TURMERIC [Concomitant]
     Active Substance: HERBALS\TURMERIC

REACTIONS (5)
  - Anxiety [None]
  - Panic attack [None]
  - Tremor [None]
  - Dysstasia [None]
  - Gait disturbance [None]

NARRATIVE: CASE EVENT DATE: 20220504
